FAERS Safety Report 18902476 (Version 1)
Quarter: 2021Q1

REPORT INFORMATION
  Report Type: Spontaneous
  Country: US (occurrence: US)
  Receive Date: 20210216
  Receipt Date: 20210216
  Transmission Date: 20210420
  Serious: No
  Sender: FDA-Public Use
  Company Number: US-BIOMARINAP-US-2021-134837

PATIENT
  Age: 32 Year
  Sex: Male

DRUGS (1)
  1. ALDURAZYME [Suspect]
     Active Substance: LARONIDASE
     Indication: MUCOPOLYSACCHARIDOSIS I
     Dosage: 60.9 MILLIGRAM, QOW
     Route: 042
     Dates: start: 20191214

REACTIONS (2)
  - Pyrexia [Recovered/Resolved]
  - COVID-19 [Recovered/Resolved]
